FAERS Safety Report 11383814 (Version 1)
Quarter: 2015Q3

REPORT INFORMATION
  Report Type: Spontaneous
  Country: FR (occurrence: FR)
  Receive Date: 20150814
  Receipt Date: 20150814
  Transmission Date: 20151125
  Serious: Yes (Life-Threatening, Hospitalization, Other)
  Sender: FDA-Public Use
  Company Number: FR-ASTRAZENECA-2015SE77776

PATIENT
  Age: 19301 Day
  Sex: Male

DRUGS (9)
  1. BISOCE [Suspect]
     Active Substance: BISOPROLOL
     Indication: CORONARY ARTERY DISEASE
     Route: 048
     Dates: end: 20150716
  2. PERINDROPRIL [Concomitant]
     Active Substance: PERINDOPRIL
  3. CRESTOR [Suspect]
     Active Substance: ROSUVASTATIN CALCIUM
     Indication: CORONARY ARTERY DISEASE
     Route: 048
     Dates: end: 20150716
  4. BRICANYL [Concomitant]
     Active Substance: TERBUTALINE SULFATE
     Dosage: 5 MG / 2 ML
  5. RISPERDAL [Suspect]
     Active Substance: RISPERIDONE
     Indication: CONFUSIONAL STATE
     Dosage: 1 MG/ML TWICE A DAY
     Route: 048
     Dates: start: 20150711, end: 20150716
  6. CONTRAMAL [Concomitant]
     Active Substance: TRAMADOL HYDROCHLORIDE
  7. HEPARIN [Concomitant]
     Active Substance: HEPARIN SODIUM
  8. KARDEGIC [Concomitant]
     Active Substance: ASPIRIN LYSINE
  9. CLAFORAN [Concomitant]
     Active Substance: CEFOTAXIME SODIUM

REACTIONS (7)
  - Conduction disorder [Recovered/Resolved]
  - Sinoatrial block [Recovered/Resolved]
  - Cardio-respiratory arrest [Recovered/Resolved]
  - Atrioventricular block [Recovered/Resolved]
  - Cardiac arrest [Unknown]
  - Loss of consciousness [Unknown]
  - Urinary incontinence [Unknown]

NARRATIVE: CASE EVENT DATE: 20150715
